FAERS Safety Report 14710431 (Version 1)
Quarter: 2018Q2

REPORT INFORMATION
  Report Type: Spontaneous
  Country: JP (occurrence: JP)
  Receive Date: 20180403
  Receipt Date: 20180403
  Transmission Date: 20180711
  Serious: Yes (Hospitalization, Other)
  Sender: FDA-Public Use
  Company Number: JP-PFIZER INC-2018128672

PATIENT
  Age: 88 Year
  Sex: Female

DRUGS (3)
  1. MEMARY [Concomitant]
     Active Substance: MEMANTINE HYDROCHLORIDE
     Dosage: 10 MG, DAILY (IN THE EVENING)
     Route: 048
  2. HALCION [Suspect]
     Active Substance: TRIAZOLAM
     Dosage: 1 MG, (FOUR 0.25-MG TABLETS) DAILY
     Route: 048
  3. DEPAKENE [Concomitant]
     Active Substance: VALPROIC ACID
     Dosage: 4 ML, THRICE DAILY
     Route: 048

REACTIONS (4)
  - Altered state of consciousness [Unknown]
  - Malaise [Unknown]
  - Tremor [Unknown]
  - Intestinal obstruction [Unknown]
